FAERS Safety Report 25668413 (Version 2)
Quarter: 2025Q3

REPORT INFORMATION
  Report Type: Report from Study
  Country: US (occurrence: US)
  Receive Date: 20250812
  Receipt Date: 20250821
  Transmission Date: 20251020
  Serious: Yes (Other)
  Sender: SUNOVION
  Company Number: US-SUMITOMO PHARMA SWITZERLAND GMBH-2025SPA005725

PATIENT
  Age: 64 Year
  Sex: Male

DRUGS (2)
  1. ORGOVYX [Suspect]
     Active Substance: RELUGOLIX
     Indication: Prostate cancer
     Route: 048
     Dates: start: 20250401, end: 20250401
  2. ORGOVYX [Suspect]
     Active Substance: RELUGOLIX
     Dosage: 120 MG, QD
     Route: 048
     Dates: start: 20250402

REACTIONS (9)
  - Myocardial infarction [Unknown]
  - Sleep disorder [Unknown]
  - Abnormal dreams [Unknown]
  - Emotional disorder [Unknown]
  - Dizziness postural [Unknown]
  - Central obesity [Unknown]
  - Mood swings [Unknown]
  - Dizziness [Unknown]
  - Insomnia [Unknown]
